FAERS Safety Report 13412235 (Version 4)
Quarter: 2018Q1

REPORT INFORMATION
  Report Type: Spontaneous
  Country: US (occurrence: US)
  Receive Date: 20170406
  Receipt Date: 20180310
  Transmission Date: 20180508
  Serious: Yes (Other)
  Sender: FDA-Public Use
  Company Number: US-JNJFOC-20170220810

PATIENT
  Sex: Male

DRUGS (5)
  1. RISPERIDONE. [Suspect]
     Active Substance: RISPERIDONE
     Indication: AUTISM SPECTRUM DISORDER
     Dosage: VARYING DOSES OF 1.25 G AND 1.5 MG
     Route: 048
     Dates: start: 20110622, end: 20161028
  2. RISPERDAL [Suspect]
     Active Substance: RISPERIDONE
     Indication: AUTISM SPECTRUM DISORDER
     Dosage: VARYING DOSES OF 0.25 MG, 0.75 MG, 1 MG, 1.5 MG, 2 MG
     Route: 048
     Dates: start: 20040609, end: 20090808
  3. RISPERDAL [Suspect]
     Active Substance: RISPERIDONE
     Indication: AUTISM SPECTRUM DISORDER
     Route: 048
     Dates: start: 2007, end: 2010
  4. RISPERDAL [Suspect]
     Active Substance: RISPERIDONE
     Indication: AUTISM SPECTRUM DISORDER
     Dosage: VARYING DOSES OF 0.25 MG, 0.75 MG, 1 MG, 1.5 MG, 2 MG
     Route: 048
     Dates: start: 20110518, end: 20110622
  5. RISPERDAL [Suspect]
     Active Substance: RISPERIDONE
     Indication: AUTISM SPECTRUM DISORDER
     Dosage: VARYING DOSES OF 0.25 MG, 0.75 MG, 1 MG, 1.5 MG, 2 MG
     Route: 048
     Dates: start: 20161018, end: 20161206

REACTIONS (8)
  - Depression [Unknown]
  - Tardive dyskinesia [Unknown]
  - Psychomotor hyperactivity [Unknown]
  - Gynaecomastia [Unknown]
  - Frustration tolerance decreased [Unknown]
  - Obesity [Unknown]
  - Emotional distress [Unknown]
  - Fear [Unknown]

NARRATIVE: CASE EVENT DATE: 2004
